FAERS Safety Report 5240387-3 (Version None)
Quarter: 2007Q1

REPORT INFORMATION
  Report Type: 
  Country: None (occurrence: None)
  Receive Date: 20061208
  Receipt Date: 20050923
  Transmission Date: 20070707
  Serious: Yes (Other)
  Sender: FDA-Public Use
  Company Number: 2005UW14283

PATIENT
  Age: 75 Year
  Sex: Female
  Weight: 50.348 kg

DRUGS (3)
  1. CRESTOR [Suspect]
     Indication: BLOOD CHOLESTEROL INCREASED
     Dosage: 5 MG HS PO
     Route: 048
     Dates: start: 20050801
  2. FOSAMAX [Concomitant]
  3. TIMOPTIC [Concomitant]

REACTIONS (5)
  - ERUCTATION [None]
  - FLATULENCE [None]
  - INSOMNIA [None]
  - LABYRINTHITIS [None]
  - STOMACH DISCOMFORT [None]
